FAERS Safety Report 7298764-5 (Version None)
Quarter: 2011Q1

REPORT INFORMATION
  Report Type: 
  Country: None (occurrence: None)
  Receive Date: 20110217
  Receipt Date: 20110202
  Transmission Date: 20110831
  Serious: Yes (Death, Life-Threatening, Hospitalization)
  Sender: FDA-Public Use
  Company Number: GB-ROCHE-738802

PATIENT
  Sex: Female

DRUGS (8)
  1. CLEXANE [Concomitant]
  2. MUPIROCIN CALCIUM [Concomitant]
  3. LUCENTIS [Suspect]
     Dosage: UNK
     Route: 031
     Dates: start: 20100611
  4. LUCENTIS [Suspect]
     Route: 031
     Dates: start: 20100707
  5. ASPIRIN [Concomitant]
  6. OMEPRAZOLE [Concomitant]
  7. CLOPIDOGREL BISULFATE [Concomitant]
  8. LUCENTIS [Suspect]
     Dosage: UNK
     Route: 031
     Dates: start: 20100514

REACTIONS (1)
  - ACUTE MYOCARDIAL INFARCTION [None]
